FAERS Safety Report 19026490 (Version 1)
Quarter: 2021Q1

REPORT INFORMATION
  Report Type: Report from Study
  Country: US (occurrence: US)
  Receive Date: 20210318
  Receipt Date: 20210318
  Transmission Date: 20210420
  Serious: Yes (Hospitalization)
  Sender: FDA-Public Use
  Company Number: US-PACIRA-2021000202

PATIENT
  Age: 58 Year
  Sex: Male
  Weight: 94 kg

DRUGS (15)
  1. EXPAREL [Suspect]
     Active Substance: BUPIVACAINE
     Indication: POSTOPERATIVE ANALGESIA
     Dosage: 2018 20ML EXPAREL AND 40ML SALINE TOTAL VOLUME 60ML
     Route: 065
  2. OXYCONTIN [Concomitant]
     Active Substance: OXYCODONE HYDROCHLORIDE
     Indication: PREOPERATIVE CARE
     Dosage: 12 HR TABLET 10 MG 10 AT 6:41AM
     Route: 048
     Dates: start: 20180927
  3. PROPOFOL. [Concomitant]
     Active Substance: PROPOFOL
     Indication: INTRAOPERATIVE CARE
     Dosage: NOT REPORTED
     Route: 065
  4. SALINE [Concomitant]
     Active Substance: SODIUM CHLORIDE
     Indication: POSTOPERATIVE ANALGESIA
     Dosage: 2018; 40ML WITH 20ML EXPAREL. TOTAL VOLUME 60ML
     Route: 065
  5. ROXICODONE [Concomitant]
     Active Substance: OXYCODONE HYDROCHLORIDE
     Indication: POSTOPERATIVE ANALGESIA
     Dosage: 11:00AM??5MG
     Route: 048
     Dates: start: 20180927
  6. SUBLIMAZE [Concomitant]
     Active Substance: FENTANYL CITRATE
     Indication: INTRAOPERATIVE CARE
     Dosage: 10:29AM, 10:32AM, 10:37AM, 10:40AM??25 MCG 50 MCG/ML MCG
     Route: 042
     Dates: start: 20180927
  7. BUPIVACAINE. [Suspect]
     Active Substance: BUPIVACAINE
     Indication: POSTOPERATIVE ANALGESIA
     Dosage: 2018; 30ML
     Route: 065
  8. METOCLOPRAMI [Concomitant]
     Indication: INTRAOPERATIVE CARE
     Dosage: NOT REPORTED
     Route: 065
  9. DILAUDID [Concomitant]
     Active Substance: HYDROMORPHONE HYDROCHLORIDE
     Indication: POSTOPERATIVE ANALGESIA
     Dosage: 10:46AM, 10:49AM, 10:55AM, 11:29AM, 11:43AM ??0.2 MG 1 MG/ML MG
     Route: 042
     Dates: start: 20180927
  10. SUBLIMAZE [Concomitant]
     Active Substance: FENTANYL CITRATE
     Indication: INTRAOPERATIVE CARE
     Dosage: NOT REPORTED, INTRA?OP
     Route: 065
  11. ONDANSETRON [Concomitant]
     Active Substance: ONDANSETRON
     Indication: INTRAOPERATIVE CARE
     Dosage: NOT REPORTED
     Route: 065
  12. PERCOCET [Concomitant]
     Active Substance: ACETAMINOPHEN\OXYCODONE HYDROCHLORIDE
     Indication: POSTOPERATIVE ANALGESIA
     Dosage: 12:51PM??2 TABLET 2
     Route: 065
     Dates: start: 20180927
  13. MIDAZOLAM. [Concomitant]
     Active Substance: MIDAZOLAM
     Indication: INTRAOPERATIVE CARE
     Dosage: NOT REPORTED
     Route: 065
  14. DEXAMETHASONE. [Concomitant]
     Active Substance: DEXAMETHASONE
     Indication: INTRAOPERATIVE CARE
     Dosage: NOT REPORTED
     Route: 065
  15. TYLENOL [Concomitant]
     Active Substance: ACETAMINOPHEN
     Indication: INTRAOPERATIVE CARE
     Dosage: NOT REPORTED
     Route: 042

REACTIONS (1)
  - Osteoarthritis [Unknown]
